FAERS Safety Report 6579154-7 (Version None)
Quarter: 2010Q1

REPORT INFORMATION
  Report Type: 
  Country: None (occurrence: None)
  Receive Date: 20100212
  Receipt Date: 20100201
  Transmission Date: 20100710
  Serious: Yes (Hospitalization)
  Sender: FDA-Public Use
  Company Number: US-JNJFOC-20100202267

PATIENT
  Sex: Female
  Weight: 42 kg

DRUGS (7)
  1. TYLENOL-500 [Suspect]
     Route: 048
  2. TYLENOL-500 [Suspect]
     Indication: BACK PAIN
     Route: 048
  3. VITAMIN D [Concomitant]
  4. CALCIUM [Concomitant]
  5. NORCO [Concomitant]
  6. XANAX [Concomitant]
  7. LEXAPRO [Concomitant]

REACTIONS (3)
  - ACCIDENTAL OVERDOSE [None]
  - ACUTE HEPATIC FAILURE [None]
  - RENAL FAILURE ACUTE [None]
